FAERS Safety Report 15654291 (Version 1)
Quarter: 2018Q4

REPORT INFORMATION
  Report Type: Spontaneous
  Country: US (occurrence: US)
  Receive Date: 20181125
  Receipt Date: 20181125
  Transmission Date: 20190205
  Serious: Yes (Other)
  Sender: FDA-Public Use
  Company Number: US-JNJFOC-20181118233

PATIENT
  Age: 27 Year
  Sex: Female

DRUGS (2)
  1. ACETAMINOPHEN. [Suspect]
     Active Substance: ACETAMINOPHEN
     Route: 048
  2. ACETAMINOPHEN. [Suspect]
     Active Substance: ACETAMINOPHEN
     Indication: TOOTHACHE
     Dosage: FULL BOTTLE (BOTTLE SIZE UNKNOWN) OF ACETAMINOPHEN THE DAY AND NIGHT PRECEDING THE BIRTH OF THE BABY
     Route: 048

REACTIONS (5)
  - Hepatotoxicity [Recovering/Resolving]
  - Toxicity to various agents [Recovering/Resolving]
  - Exposure during pregnancy [Unknown]
  - Product use issue [Unknown]
  - Premature labour [Unknown]
